FAERS Safety Report 22197642 (Version 1)
Quarter: 2023Q2

REPORT INFORMATION
  Report Type: Spontaneous
  Country: US (occurrence: US)
  Receive Date: 20230411
  Receipt Date: 20230411
  Transmission Date: 20230721
  Serious: Yes (Other)
  Sender: FDA-Public Use
  Company Number: US-FreseniusKabi-FK202304160

PATIENT
  Sex: Male

DRUGS (2)
  1. SMOFLIPID [Suspect]
     Active Substance: FISH OIL\MEDIUM-CHAIN TRIGLYCERIDES\OLIVE OIL\SOYBEAN OIL
     Indication: Parenteral nutrition
  2. OMEGAVEN [Suspect]
     Active Substance: FISH OIL
     Indication: Parenteral nutrition

REACTIONS (2)
  - Hepatic failure [Unknown]
  - Off label use [Unknown]
